FAERS Safety Report 4427422-7 (Version None)
Quarter: 2004Q3

REPORT INFORMATION
  Report Type: 
  Country: None (occurrence: None)
  Receive Date: 20040812
  Receipt Date: 20040802
  Transmission Date: 20050211
  Serious: Yes (Hospitalization)
  Sender: FDA-Public Use
  Company Number: 2004CG01483

PATIENT
  Age: 32 Year
  Sex: Male

DRUGS (10)
  1. OMEPRAZOLE [Suspect]
     Dosage: 20 MG QD PO
     Route: 048
     Dates: start: 20040510
  2. METHOTREXATE [Suspect]
     Dosage: 1500 MG ONCE IM
     Route: 030
     Dates: start: 20040310, end: 20040310
  3. METHOTREXATE [Suspect]
     Dosage: 1500 MG ONCE IM
     Route: 030
     Dates: start: 20040510, end: 20040510
  4. AMOXICILLIN [Suspect]
     Dosage: 3 G QD PO
     Route: 048
     Dates: start: 20040510, end: 20040517
  5. CYCLOPHOSPHAMIDE [Suspect]
     Dosage: 950 MG QD
     Dates: start: 20040511, end: 20040512
  6. ADRIAMYCIN PFS [Suspect]
     Dosage: 114 MG ONCE
     Dates: start: 20040511, end: 20040511
  7. VINCRISTINE [Suspect]
     Dosage: 2 MG ONCE
     Dates: start: 20040510, end: 20040510
  8. FOLINORAL [Concomitant]
  9. FRAXODI [Concomitant]
  10. ARANESP [Concomitant]

REACTIONS (3)
  - ESCHERICHIA INFECTION [None]
  - FEBRILE BONE MARROW APLASIA [None]
  - TOXIC SKIN ERUPTION [None]
